FAERS Safety Report 12369337 (Version 1)
Quarter: 2016Q2

REPORT INFORMATION
  Report Type: Spontaneous
  Country: US (occurrence: US)
  Receive Date: 20160513
  Receipt Date: 20160513
  Transmission Date: 20160815
  Serious: No
  Sender: FDA-Public Use
  Company Number: US-BAYER-2016-087063

PATIENT

DRUGS (1)
  1. BETASERON [Suspect]
     Active Substance: INTERFERON BETA-1B
     Dosage: UNK
     Dates: start: 20010401, end: 20150401

REACTIONS (3)
  - Balance disorder [None]
  - Papilloma viral infection [None]
  - Incontinence [None]

NARRATIVE: CASE EVENT DATE: 2001
